FAERS Safety Report 7265221-1 (Version None)
Quarter: 2011Q1

REPORT INFORMATION
  Report Type: 
  Country: None (occurrence: None)
  Receive Date: 20110131
  Receipt Date: 20110118
  Transmission Date: 20110831
  Serious: Yes (Hospitalization, Other)
  Sender: FDA-Public Use
  Company Number: US-BAYER-2011-006296

PATIENT
  Sex: Female
  Weight: 56 kg

DRUGS (4)
  1. PREMARIN [Concomitant]
  2. ALEVE (CAPLET) [Suspect]
     Indication: BACK PAIN
     Dosage: 1 DF, BID
     Route: 048
     Dates: start: 20110104
  3. SYNTHROID [Concomitant]
  4. ACTONEL [Concomitant]

REACTIONS (4)
  - AMNESIA [None]
  - PAIN [None]
  - SHOCK [None]
  - CONFUSIONAL STATE [None]
